FAERS Safety Report 8016035-6 (Version None)
Quarter: 2011Q4

REPORT INFORMATION
  Report Type: 
  Country: None (occurrence: None)
  Receive Date: 20111230
  Receipt Date: 20111230
  Transmission Date: 20120403
  Serious: Yes (Life-Threatening, Hospitalization)
  Sender: FDA-Public Use
  Company Number: None

PATIENT
  Age: 36 Year
  Sex: Male
  Weight: 83.914 kg

DRUGS (2)
  1. STRATTERA [Concomitant]
     Dosage: 1 PILL AFTER THE 40MG FINISHED
     Route: 048
     Dates: start: 20111203, end: 20111203
  2. STRATTERA [Suspect]
     Indication: ATTENTION DEFICIT/HYPERACTIVITY DISORDER
     Dosage: 1 PILL FOR 3 DAYS
     Route: 048
     Dates: start: 20111130, end: 20111202

REACTIONS (11)
  - EJACULATION DISORDER [None]
  - HEADACHE [None]
  - SOMNOLENCE [None]
  - URINE FLOW DECREASED [None]
  - MICTURITION DISORDER [None]
  - DRY MOUTH [None]
  - DYSURIA [None]
  - ERECTILE DYSFUNCTION [None]
  - SLEEP DISORDER [None]
  - HYPERAESTHESIA [None]
  - ABDOMINAL DISCOMFORT [None]
